FAERS Safety Report 18025254 (Version 2)
Quarter: 2020Q3

REPORT INFORMATION
  Report Type: Spontaneous
  Country: US (occurrence: US)
  Receive Date: 20200715
  Receipt Date: 20200717
  Transmission Date: 20201103
  Serious: Yes (Other)
  Sender: FDA-Public Use
  Company Number: US-PFIZER INC-2020269693

PATIENT
  Age: 51 Year
  Sex: Male

DRUGS (5)
  1. NITROUS OXIDE. [Concomitant]
     Active Substance: NITROUS OXIDE
     Indication: ANAESTHESIA
     Dosage: UNK
     Dates: start: 197308
  2. NALOXONE HCL [Suspect]
     Active Substance: NALOXONE HYDROCHLORIDE
     Indication: VASCULAR GRAFT
     Dosage: 0.4 MG (5/UG/KG)
     Route: 042
     Dates: start: 197308
  3. NALOXONE HCL [Suspect]
     Active Substance: NALOXONE HYDROCHLORIDE
     Indication: RESPIRATORY RATE DECREASED
  4. MORPHINE [Concomitant]
     Active Substance: MORPHINE
     Indication: ANAESTHESIA
     Dosage: 210 MG
     Dates: start: 197308
  5. OXYGEN. [Concomitant]
     Active Substance: OXYGEN
     Indication: ANAESTHESIA
     Dosage: UNK
     Dates: start: 197308

REACTIONS (2)
  - Hypertension [Recovering/Resolving]
  - Ventricular arrhythmia [Recovering/Resolving]

NARRATIVE: CASE EVENT DATE: 197308
